FAERS Safety Report 5903269-7 (Version None)
Quarter: 2008Q3

REPORT INFORMATION
  Report Type: 
  Country: None (occurrence: None)
  Receive Date: 20080926
  Receipt Date: 20080910
  Transmission Date: 20090109
  Serious: Yes (Hospitalization, Other)
  Sender: FDA-Public Use
  Company Number: 2008BI023536

PATIENT
  Age: 51 Year
  Sex: Female

DRUGS (3)
  1. AVONEX [Suspect]
     Indication: MULTIPLE SCLEROSIS
     Dosage: 30 UG;QW;IM
     Route: 030
     Dates: start: 20040101
  2. ATENOLOL [Concomitant]
  3. BACLOFEN [Concomitant]

REACTIONS (16)
  - ANKLE FRACTURE [None]
  - CEREBRAL HAEMORRHAGE [None]
  - CHILLS [None]
  - CYSTITIS [None]
  - FOOT DEFORMITY [None]
  - GAIT DISTURBANCE [None]
  - HAEMANGIOMA [None]
  - HEADACHE [None]
  - INFECTION [None]
  - MUSCLE SPASMS [None]
  - NEUROGENIC BLADDER [None]
  - PAIN [None]
  - POST PROCEDURAL COMPLICATION [None]
  - PYREXIA [None]
  - SUTURE RELATED COMPLICATION [None]
  - URINARY TRACT INFECTION [None]
